FAERS Safety Report 11339946 (Version 1)
Quarter: 2015Q3

REPORT INFORMATION
  Report Type: Spontaneous
  Country: US (occurrence: US)
  Receive Date: 20150805
  Receipt Date: 20150805
  Transmission Date: 20151125
  Serious: Yes (Other)
  Sender: FDA-Public Use
  Company Number: US-CIPLA LTD.-2015US06211

PATIENT

DRUGS (6)
  1. TENOFOVIR DISOPROXIL FUMARATE. [Suspect]
     Active Substance: TENOFOVIR DISOPROXIL FUMARATE
     Indication: HIV INFECTION
     Route: 065
  2. EMTRICITABINE [Suspect]
     Active Substance: EMTRICITABINE
     Indication: HIV INFECTION
     Route: 065
  3. EFAVIRENZ [Suspect]
     Active Substance: EFAVIRENZ
     Route: 065
  4. RALTEGRAVIR. [Suspect]
     Active Substance: RALTEGRAVIR
     Indication: HIV INFECTION
     Route: 065
  5. LEDIPASVIR AND SOFOSBUVIR [Suspect]
     Active Substance: LEDIPASVIR\SOFOSBUVIR
     Indication: HIV INFECTION
     Dosage: 90 MG OF LEDIPASVIR AND 400 MG OF SOFOSBUVIR, ADMINISTERED ORALLY ONCE DAILY FOR 12 WEEKS.
     Route: 048
  6. RILPIVIRINE [Suspect]
     Active Substance: RILPIVIRINE
     Indication: HIV INFECTION
     Route: 065

REACTIONS (1)
  - Blood creatinine increased [Unknown]
